FAERS Safety Report 23890964 (Version 1)
Quarter: 2024Q2

REPORT INFORMATION
  Report Type: Spontaneous
  Country: US (occurrence: US)
  Receive Date: 20240523
  Receipt Date: 20240523
  Transmission Date: 20240716
  Serious: No
  Sender: FDA-Public Use
  Company Number: US-LGM Pharma Solutions, LLC-2157368

PATIENT
  Age: 42 Year
  Sex: Male

DRUGS (1)
  1. CHENODAL [Suspect]
     Active Substance: CHENODIOL
     Indication: Lipid metabolism disorder
     Route: 048
     Dates: start: 20100122

REACTIONS (3)
  - Xanthoma [Unknown]
  - Eye disorder [Unknown]
  - Dizziness [Unknown]
